FAERS Safety Report 6293325-9 (Version None)
Quarter: 2009Q3

REPORT INFORMATION
  Report Type: 
  Country: None (occurrence: None)
  Receive Date: 20090731
  Receipt Date: 20090721
  Transmission Date: 20100115
  Serious: Yes (Hospitalization, Other)
  Sender: FDA-Public Use
  Company Number: PHHY2009GB14751

PATIENT
  Sex: Male

DRUGS (4)
  1. CLOZARIL [Suspect]
     Indication: SCHIZOPHRENIA
     Dosage: 400 MG
     Route: 048
     Dates: start: 19980112
  2. CLOZARIL [Suspect]
     Indication: PSYCHOTIC DISORDER
  3. VALPROATE SODIUM [Concomitant]
     Dosage: 800 MG, BID
     Route: 048
  4. OXYBUTYNIN CHLORIDE [Concomitant]
     Dosage: 2.5 MG, BID
     Route: 048

REACTIONS (5)
  - CHEST PAIN [None]
  - ELECTROCARDIOGRAM QT PROLONGED [None]
  - PLEURAL EFFUSION [None]
  - PULMONARY EMBOLISM [None]
  - TACHYCARDIA [None]
